FAERS Safety Report 18732603 (Version 1)
Quarter: 2021Q1

REPORT INFORMATION
  Report Type: Spontaneous
  Country: JP (occurrence: JP)
  Receive Date: 20210112
  Receipt Date: 20210112
  Transmission Date: 20210419
  Serious: Yes (Other)
  Sender: FDA-Public Use
  Company Number: JP-GILEAD-2021-0511577

PATIENT
  Age: 83 Year
  Sex: Male
  Weight: 73 kg

DRUGS (13)
  1. ALLOPURINOL. [Concomitant]
     Active Substance: ALLOPURINOL
     Dosage: UNK
  2. AVIGAN [Concomitant]
     Active Substance: FAVIPIRAVIR
     Dosage: 1800 MG, BID
     Dates: start: 20200805, end: 20200805
  3. NAFAMOSTAT [NAFAMOSTAT MESILATE] [Concomitant]
     Dosage: 200 MG
     Dates: start: 20200807
  4. AVIGAN [Concomitant]
     Active Substance: FAVIPIRAVIR
     Dosage: 800 MG, BID
     Dates: start: 20200806, end: 20200807
  5. DECADRON [Concomitant]
     Active Substance: DEXAMETHASONE
     Dosage: 6 MG, QD
     Dates: start: 20200807
  6. DEXART [Concomitant]
     Active Substance: DEXAMETHASONE SODIUM PHOSPHATE
     Dosage: 6.6 MG
     Dates: start: 20200806
  7. OLMETEC [Concomitant]
     Active Substance: OLMESARTAN MEDOXOMIL
     Dosage: UNK
  8. STROMECTOL [Concomitant]
     Active Substance: IVERMECTIN
     Dosage: 15 MG, ONCE
     Dates: start: 20200807, end: 20200807
  9. VEKLURY [Suspect]
     Active Substance: REMDESIVIR
     Dosage: 100 MG, QD
     Route: 041
     Dates: start: 20200808, end: 20200808
  10. AMLODIN [Concomitant]
     Active Substance: AMLODIPINE BESYLATE
     Dosage: UNK
  11. BELSOMRA [Concomitant]
     Active Substance: SUVOREXANT
     Dosage: UNK
  12. ALVESCO [Concomitant]
     Active Substance: CICLESONIDE
     Dosage: 200 UG, BID
     Route: 055
     Dates: start: 20200805
  13. VEKLURY [Suspect]
     Active Substance: REMDESIVIR
     Indication: COVID-19
     Dosage: 200 MG, QD
     Route: 041
     Dates: start: 20200807, end: 20200807

REACTIONS (1)
  - Hyperamylasaemia [Recovering/Resolving]

NARRATIVE: CASE EVENT DATE: 20200808
